FAERS Safety Report 8443684 (Version 3)
Quarter: 2012Q4

REPORT INFORMATION
  Report Type: 
  Country: US (occurrence: US)
  Receive Date: 20120306
  Receipt Date: 20121008
  Transmission Date: 20130627
  Serious: Yes (Hospitalization)
  Sender: FDA-Public Use
  Company Number: PHEH2012US004451

PATIENT
  Age: 44 Year
  Sex: Female

DRUGS (2)
  1. GLEEVEC [Suspect]
     Indication: GASTRIC CANCER
     Dosage: 400 mg, daily
     Route: 048
     Dates: start: 20120131
  2. GLEEVEC [Suspect]
     Dosage: 400 mg, daily
     Route: 048
     Dates: start: 20120409

REACTIONS (4)
  - Incision site abscess [Unknown]
  - Pyrexia [Unknown]
  - Fluid retention [Unknown]
  - Weight increased [Unknown]
